FAERS Safety Report 23658400 (Version 1)
Quarter: 2024Q1

REPORT INFORMATION
  Report Type: Spontaneous
  Country: US (occurrence: None)
  Receive Date: 20240321
  Receipt Date: 20240321
  Transmission Date: 20240410
  Serious: No
  Sender: FDA-Public Use
  Company Number: None

PATIENT
  Age: 71 Year
  Sex: Female
  Weight: 106.2 kg

DRUGS (8)
  1. CYCLOPHOSPHAMIDE [Suspect]
     Active Substance: CYCLOPHOSPHAMIDE
  2. CYTARABINE [Suspect]
     Active Substance: CYTARABINE
  3. DAUNORUBICIN [Suspect]
     Active Substance: DAUNORUBICIN
  4. DEXAMETHASONE [Suspect]
     Active Substance: DEXAMETHASONE
  5. ETOPOSIDE [Suspect]
     Active Substance: ETOPOSIDE
  6. METHOTREXATE [Suspect]
     Active Substance: METHOTREXATE
  7. ONCASPAR [Suspect]
     Active Substance: PEGASPARGASE
  8. VINCRISTINE SULFATE [Suspect]
     Active Substance: VINCRISTINE SULFATE

REACTIONS (1)
  - Myelodysplastic syndrome [None]

NARRATIVE: CASE EVENT DATE: 20210423
